FAERS Safety Report 19204785 (Version 1)
Quarter: 2021Q2

REPORT INFORMATION
  Report Type: Spontaneous
  Country: PR (occurrence: PR)
  Receive Date: 20210430
  Receipt Date: 20210430
  Transmission Date: 20210717
  Serious: No
  Sender: FDA-Public Use
  Company Number: None

PATIENT
  Age: 69 Year
  Sex: Female

DRUGS (1)
  1. INFLECTRA [Suspect]
     Active Substance: INFLIXIMAB-DYYB
     Indication: RHEUMATOID ARTHRITIS
     Route: 041
     Dates: start: 20191030, end: 20210430

REACTIONS (5)
  - Drug intolerance [None]
  - Feeling abnormal [None]
  - Malaise [None]
  - Frequent bowel movements [None]
  - Dry mouth [None]

NARRATIVE: CASE EVENT DATE: 20210430
